APPROVED DRUG PRODUCT: BUDESONIDE
Active Ingredient: BUDESONIDE
Strength: 0.032MG/SPRAY
Dosage Form/Route: SPRAY, METERED;NASAL
Application: A078949 | Product #002
Applicant: APOTEX INC
Approved: Nov 20, 2015 | RLD: No | RS: No | Type: OTC